FAERS Safety Report 16557267 (Version 1)
Quarter: 2019Q3

REPORT INFORMATION
  Report Type: Spontaneous
  Country: US (occurrence: US)
  Receive Date: 20190711
  Receipt Date: 20190711
  Transmission Date: 20191004
  Serious: Yes (Hospitalization, Other)
  Sender: FDA-Public Use
  Company Number: US-GLENMARK PHARMACEUTICALS-2019GMK042060

PATIENT
  Age: 47 Year
  Sex: Female

DRUGS (3)
  1. TRIAMCINOLONE ACETONIDE. [Suspect]
     Active Substance: TRIAMCINOLONE ACETONIDE
     Indication: CONDITION AGGRAVATED
     Dosage: UNK (SINCE PAST FEW YEARS)
     Route: 061
  2. PREDNISONE. [Suspect]
     Active Substance: PREDNISONE
     Indication: DERMATITIS ATOPIC
     Dosage: 50 MG, OD
     Route: 048
  3. NORMAL SALINE [Suspect]
     Active Substance: SODIUM CHLORIDE
     Indication: DEHYDRATION
     Dosage: 2 L, UNK (IN TOTAL)
     Route: 065

REACTIONS (2)
  - Pulmonary oedema [Recovering/Resolving]
  - Fluid overload [Recovering/Resolving]
